FAERS Safety Report 10213353 (Version 2)
Quarter: 2014Q2

REPORT INFORMATION
  Report Type: Spontaneous
  Country: US (occurrence: None)
  Receive Date: 20140529
  Receipt Date: 20140626
  Transmission Date: 20141212
  Serious: Yes (Death)
  Sender: FDA-Public Use
  Company Number: HA14-196-AE

PATIENT
  Age: 68 Year
  Sex: Female
  Weight: 72.6 kg

DRUGS (15)
  1. NAPROXEN TABLETS, USP [Suspect]
     Indication: OSTEOARTHRITIS
     Route: 048
     Dates: start: 20130910
  2. NAPROXEN TABLETS, USP [Suspect]
     Indication: RHEUMATOID ARTHRITIS
     Route: 048
     Dates: start: 20130910
  3. CELECOXIB [Suspect]
     Indication: OSTEOARTHRITIS
     Route: 048
     Dates: start: 20130910
  4. CELECOXIB [Suspect]
     Indication: RHEUMATOID ARTHRITIS
     Route: 048
     Dates: start: 20130910
  5. ESOMEPRAZOLE (NEXIUM) [Concomitant]
  6. EFEXOR XR [Concomitant]
  7. SPIRONOLACTONE [Concomitant]
  8. ERGOCALCIFEROL [Concomitant]
  9. KLONOPIN [Concomitant]
  10. LIPITOR [Concomitant]
  11. MULTIVITAMINS [Concomitant]
  12. IBUPROFEN [Suspect]
     Indication: OSTEOARTHRITIS
     Dosage: TID, DAILY.
     Route: 048
     Dates: start: 20130910
  13. IBUPROFEN [Suspect]
     Indication: RHEUMATOID ARTHRITIS
     Dosage: TID, DAILY.
     Route: 048
     Dates: start: 20130910
  14. PLACEBO [Suspect]
     Indication: OSTEOARTHRITIS
     Dosage: TID DAILY.
     Route: 048
     Dates: start: 20130910
  15. PLACEBO [Suspect]
     Indication: RHEUMATOID ARTHRITIS
     Dosage: TID DAILY.
     Route: 048
     Dates: start: 20130910

REACTIONS (1)
  - Sudden cardiac death [None]
